FAERS Safety Report 5671900-X (Version None)
Quarter: 2008Q2

REPORT INFORMATION
  Report Type: 
  Country: None (occurrence: None)
  Receive Date: 20080219
  Receipt Date: 20080102
  Transmission Date: 20081010
  Serious: No
  Sender: FDA-Public Use
  Company Number: TPA2007A02037

PATIENT
  Age: 53 Year
  Sex: Female
  Weight: 57.6068 kg

DRUGS (6)
  1. ROZEREM [Suspect]
     Indication: INSOMNIA
     Dosage: 8 MG, QHS, PER ORAL
     Route: 048
     Dates: start: 20070930
  2. CORTEF [Concomitant]
  3. FLORINEF [Concomitant]
  4. ESTROGEN/PROGESTERONE (PROGESTERONE, ESTROGEN NOS) [Concomitant]
  5. DHEA (PRASTERONE) [Concomitant]
  6. TESTOSTERONE [Concomitant]

REACTIONS (3)
  - BLOOD GLUCOSE ABNORMAL [None]
  - MIDDLE INSOMNIA [None]
  - TREMOR [None]
